FAERS Safety Report 7409368-5 (Version None)
Quarter: 2011Q2

REPORT INFORMATION
  Report Type: 
  Country: None (occurrence: None)
  Receive Date: 20110412
  Receipt Date: 20110315
  Transmission Date: 20111010
  Serious: Yes (Hospitalization)
  Sender: FDA-Public Use
  Company Number: US-BAYER-201038227NA

PATIENT
  Age: 29 Year
  Sex: Female
  Weight: 54 kg

DRUGS (9)
  1. YAZ [Suspect]
     Indication: OVARIAN CYST
     Dosage: UNK
     Dates: start: 20100315, end: 20100728
  2. YASMIN [Suspect]
     Indication: OVARIAN CYST
     Dosage: UNK
  3. AMOXICILLIN [Concomitant]
     Dosage: UNK
     Dates: start: 20080522
  4. PROAIR HFA [Concomitant]
     Dosage: UNK
     Dates: start: 20080122
  5. AMBIEN [Concomitant]
     Dosage: UNK
     Dates: start: 20080101
  6. YASMIN [Suspect]
     Indication: CONTRACEPTION
     Dosage: UNK
     Dates: start: 20050909, end: 20060218
  7. YAZ [Suspect]
     Indication: ACNE
     Dosage: UNK
     Dates: start: 20090201, end: 20091001
  8. YAZ [Suspect]
     Indication: CONTRACEPTION
     Dosage: UNK UNK, QD
     Route: 048
     Dates: start: 20060827, end: 20081018
  9. YASMIN [Suspect]
     Indication: ACNE
     Dosage: UNK UNK, QD
     Route: 048
     Dates: start: 20040910, end: 20050520

REACTIONS (6)
  - BILIARY DYSKINESIA [None]
  - ABDOMINAL PAIN [None]
  - NAUSEA [None]
  - DIZZINESS [None]
  - PANIC ATTACK [None]
  - DYSGEUSIA [None]
